FAERS Safety Report 17631169 (Version 1)
Quarter: 2020Q2

REPORT INFORMATION
  Report Type: Spontaneous
  Country: US (occurrence: US)
  Receive Date: 20200406
  Receipt Date: 20200406
  Transmission Date: 20200713
  Serious: No
  Sender: FDA-Public Use
  Company Number: US-ASTRAZENECA-2020SE45009

PATIENT
  Age: 48 Year
  Sex: Male

DRUGS (1)
  1. BYETTA [Suspect]
     Active Substance: EXENATIDE
     Indication: DIABETES MELLITUS
     Dosage: 10.0UG UNKNOWN
     Route: 065
     Dates: start: 2019

REACTIONS (2)
  - Wrong technique in device usage process [Recovered/Resolved]
  - Device leakage [Unknown]

NARRATIVE: CASE EVENT DATE: 20200325
